FAERS Safety Report 5693854-2 (Version None)
Quarter: 2008Q2

REPORT INFORMATION
  Report Type: 
  Country: None (occurrence: None)
  Receive Date: 20080403
  Receipt Date: 20080324
  Transmission Date: 20081010
  Serious: Yes (Other)
  Sender: FDA-Public Use
  Company Number: US-PFIZER INC-2008000978

PATIENT
  Sex: Female
  Weight: 55.8 kg

DRUGS (11)
  1. SUTENT [Suspect]
     Indication: RENAL CELL CARCINOMA
     Route: 048
  2. ALBUTEROL [Concomitant]
  3. CARTIA XT [Concomitant]
     Route: 048
  4. CHONDROITIN [Concomitant]
  5. FORADIL [Concomitant]
  6. LASIX [Concomitant]
     Route: 048
  7. LISINOPRIL AND HYDROCHLOROTHIAZIDE [Concomitant]
  8. PEPCID [Concomitant]
  9. PREVACID [Concomitant]
  10. ALL OTHER THERAPEUTIC PRODUCTS [Concomitant]
  11. CARTIA XT [Concomitant]

REACTIONS (6)
  - ANEURYSM [None]
  - HAEMORRHAGE [None]
  - LIVER FUNCTION TEST ABNORMAL [None]
  - RETINAL DISORDER [None]
  - UPPER GASTROINTESTINAL HAEMORRHAGE [None]
  - VITREOUS HAEMORRHAGE [None]
